FAERS Safety Report 17239745 (Version 4)
Quarter: 2022Q1

REPORT INFORMATION
  Report Type: Report from Study
  Country: US (occurrence: US)
  Receive Date: 20200106
  Receipt Date: 20220221
  Transmission Date: 20220423
  Serious: No
  Sender: FDA-Public Use
  Company Number: None

PATIENT
  Age: 81 Year
  Sex: Female

DRUGS (1)
  1. BEOVU [Suspect]
     Active Substance: BROLUCIZUMAB-DBLL
     Indication: Neovascular age-related macular degeneration
     Dosage: 1 DF
     Route: 047
     Dates: start: 20200103

REACTIONS (5)
  - Vision blurred [Unknown]
  - Fatigue [Unknown]
  - Diabetic complication [Unknown]
  - Lacrimation increased [Unknown]
  - Eye irritation [Unknown]

NARRATIVE: CASE EVENT DATE: 20200103
